FAERS Safety Report 6164179-6 (Version None)
Quarter: 2009Q2

REPORT INFORMATION
  Report Type: 
  Country: None (occurrence: None)
  Receive Date: 20090420
  Receipt Date: 20090406
  Transmission Date: 20091009
  Serious: Yes (Other)
  Sender: FDA-Public Use
  Company Number: B0569998A

PATIENT
  Age: 13 Month
  Sex: Male

DRUGS (2)
  1. SALBUTAMOL SULPHATE (FORMULATION UNKNOWN) (GENERIC) (ALBUTEROL SULFATE [Suspect]
     Dosage: 2.5 MG
  2. STEROID (FORMULATION UNKNOWN) (STEROID) [Suspect]

REACTIONS (3)
  - DIABETIC KETOACIDOSIS [None]
  - METABOLIC ACIDOSIS [None]
  - TYPE 1 DIABETES MELLITUS [None]
